FAERS Safety Report 4280698-1 (Version None)
Quarter: 2004Q1

REPORT INFORMATION
  Report Type: 
  Country: None (occurrence: None)
  Receive Date: 20040127
  Receipt Date: 20040107
  Transmission Date: 20041129
  Serious: Yes (Hospitalization)
  Sender: FDA-Public Use
  Company Number: EM2004-0003

PATIENT
  Sex: Male

DRUGS (1)
  1. PROLEUKIN [Suspect]
     Indication: RENAL CELL CARCINOMA STAGE UNSPECIFIED
     Dosage: 18 MIU, QDX4DX2W, SUBCUTAN.
     Route: 058

REACTIONS (10)
  - ATRIAL FIBRILLATION [None]
  - BLOOD CREATININE INCREASED [None]
  - CAPILLARY LEAK SYNDROME [None]
  - CONDITION AGGRAVATED [None]
  - EOSINOPHILIA [None]
  - FLUID RETENTION [None]
  - LEUKOCYTOSIS [None]
  - PALPITATIONS [None]
  - PRURITUS [None]
  - RASH [None]
